FAERS Safety Report 6288451-4 (Version None)
Quarter: 2009Q3

REPORT INFORMATION
  Report Type: 
  Country: None (occurrence: None)
  Receive Date: 20090729
  Receipt Date: 20090722
  Transmission Date: 20100115
  Serious: Yes (Hospitalization)
  Sender: FDA-Public Use
  Company Number: B0432213A

PATIENT
  Sex: Male

DRUGS (17)
  1. EPIVIR [Suspect]
     Indication: ACQUIRED IMMUNODEFICIENCY SYNDROME
     Dosage: 150MG TWICE PER DAY
     Route: 048
     Dates: start: 20000926, end: 20060822
  2. RETROVIR [Suspect]
     Indication: ACQUIRED IMMUNODEFICIENCY SYNDROME
     Dosage: 400MG PER DAY
     Route: 048
     Dates: start: 20050602, end: 20060822
  3. ZERIT [Suspect]
     Indication: ACQUIRED IMMUNODEFICIENCY SYNDROME
     Dosage: 80MG PER DAY
     Route: 048
     Dates: start: 20020405, end: 20050516
  4. VIRAMUNE [Suspect]
     Indication: ACQUIRED IMMUNODEFICIENCY SYNDROME
     Dosage: 400MG PER DAY
     Route: 048
     Dates: start: 20000926, end: 20001009
  5. EPZICOM [Suspect]
     Indication: ACQUIRED IMMUNODEFICIENCY SYNDROME
     Route: 048
     Dates: start: 20060823
  6. RENIVACE [Concomitant]
     Indication: HYPERTENSION
     Dosage: 5MG PER DAY
     Route: 048
     Dates: start: 20050401
  7. GASMOTIN [Concomitant]
     Indication: GASTRIC OPERATION
     Dosage: 5MG THREE TIMES PER DAY
     Route: 048
     Dates: start: 20050401
  8. MAGNESIUM OXIDE [Concomitant]
     Indication: GASTRIC OPERATION
     Dosage: .5MG THREE TIMES PER DAY
     Route: 048
     Dates: start: 20050401, end: 20060409
  9. MAGNESIUM OXIDE [Concomitant]
     Dosage: 2G PER DAY
     Route: 048
     Dates: start: 20060410, end: 20080507
  10. PURSENNID [Concomitant]
     Indication: CONSTIPATION
     Dosage: 24MG PER DAY
     Route: 048
     Dates: start: 20070401, end: 20080507
  11. UNASYN [Concomitant]
     Indication: PNEUMONIA
     Dosage: 6G PER DAY
     Route: 042
     Dates: start: 20080507, end: 20080721
  12. MAXIPIME [Concomitant]
     Indication: PNEUMONIA
     Dates: start: 20080513, end: 20081005
  13. DALACIN [Concomitant]
     Indication: PNEUMONIA
     Dosage: 1800MG PER DAY
     Route: 042
     Dates: start: 20080513, end: 20081005
  14. CEFAMEZIN [Concomitant]
     Indication: PNEUMONIA
     Dosage: 3G PER DAY
     Dates: start: 20080711, end: 20080807
  15. VANCOMYCIN [Concomitant]
     Indication: PNEUMONIA
     Dosage: 2G PER DAY
     Dates: start: 20080724, end: 20081005
  16. BAKTAR [Concomitant]
     Indication: PNEUMONIA
     Dosage: 4G PER DAY
     Route: 048
     Dates: start: 20081003
  17. AVELOX [Concomitant]
     Indication: PNEUMONIA
     Dosage: 400MG PER DAY
     Route: 048
     Dates: start: 20081005

REACTIONS (5)
  - DECREASED APPETITE [None]
  - DEPRESSION [None]
  - INSOMNIA [None]
  - SUICIDE ATTEMPT [None]
  - WEIGHT DECREASED [None]
